FAERS Safety Report 4308990-2 (Version None)
Quarter: 2004Q1

REPORT INFORMATION
  Report Type: 
  Country: None (occurrence: None)
  Receive Date: 20040227
  Receipt Date: 20040220
  Transmission Date: 20041129
  Serious: Yes (Life-Threatening)
  Sender: FDA-Public Use
  Company Number: 2004200519GB

PATIENT
  Age: 47 Year
  Sex: Male

DRUGS (6)
  1. ZYVOX [Suspect]
     Indication: INFECTION
     Dosage: 600 MG, BID, IV
     Route: 042
     Dates: start: 20040128
  2. MEROPENEM (MEROPENEM) [Concomitant]
  3. ANFOTERICINA [Concomitant]
  4. BETAXOLOL [Concomitant]
  5. ERYTHROMYCIN [Concomitant]
  6. PARACETAMOL [Concomitant]

REACTIONS (1)
  - BRADYCARDIA [None]
